FAERS Safety Report 8484491 (Version 3)
Quarter: 2013Q2

REPORT INFORMATION
  Report Type: Report from Study
  Country: BR (occurrence: BR)
  Receive Date: 20120330
  Receipt Date: 20130522
  Transmission Date: 20140414
  Serious: Yes (Other)
  Sender: FDA-Public Use
  Company Number: PHHY2012BR026980

PATIENT
  Sex: Female

DRUGS (1)
  1. TEGRETOL CR [Suspect]
     Indication: EPILEPSY
     Dosage: 6 TABLETS DAILY
     Route: 048

REACTIONS (2)
  - Gestational diabetes [Recovering/Resolving]
  - Exposure during pregnancy [Unknown]
